FAERS Safety Report 8027316-4 (Version None)
Quarter: 2012Q1

REPORT INFORMATION
  Report Type: 
  Country: None (occurrence: None)
  Receive Date: 20120106
  Receipt Date: 20111230
  Transmission Date: 20120608
  Serious: Yes (Hospitalization, Disabling, Other)
  Sender: FDA-Public Use
  Company Number: US-BRISTOL-MYERS SQUIBB COMPANY-16309379

PATIENT
  Age: 58 Year
  Sex: Male
  Weight: 96 kg

DRUGS (8)
  1. VIREAD [Concomitant]
  2. REYATAZ [Concomitant]
  3. CLONIDINE [Concomitant]
     Indication: BLOOD PRESSURE
  4. THEOPHYLLINE [Concomitant]
     Indication: ASTHMA
  5. ZERIT [Suspect]
     Indication: HIV INFECTION
  6. ZETIA [Concomitant]
  7. LIPITOR [Concomitant]
  8. ASPIRIN [Concomitant]

REACTIONS (4)
  - AXILLARY MASS [None]
  - DEFORMITY [None]
  - BREAST MASS [None]
  - MASS [None]
